FAERS Safety Report 7360546-3 (Version None)
Quarter: 2011Q1

REPORT INFORMATION
  Report Type: 
  Country: None (occurrence: None)
  Receive Date: 20110318
  Receipt Date: 20110303
  Transmission Date: 20110831
  Serious: Yes (Hospitalization, Other)
  Sender: FDA-Public Use
  Company Number: JP-BAYER-2011-004638

PATIENT
  Age: 67 Year
  Sex: Male
  Weight: 53 kg

DRUGS (5)
  1. ULCERLMIN [Concomitant]
     Indication: GASTRITIS
     Dosage: DAILY DOSE 3 G
     Route: 048
  2. GLYCYRON [Concomitant]
     Indication: HEPATITIS C
     Dosage: DAILY DOSE 3 DF
     Route: 048
  3. URSO 250 [Concomitant]
     Indication: HEPATITIS C
     Dosage: DAILY DOSE 600 MG
     Route: 048
  4. NEXAVAR [Suspect]
     Indication: HEPATIC NEOPLASM MALIGNANT
     Dosage: 200 MG, BID
     Route: 048
     Dates: start: 20100902, end: 20101116
  5. NEXAVAR [Suspect]
     Dosage: 600 MG, UNK
     Route: 048
     Dates: start: 20101117, end: 20101215

REACTIONS (2)
  - GASTRIC ULCER [None]
  - ASCITES [None]
